FAERS Safety Report 13968369 (Version 1)
Quarter: 2017Q3

REPORT INFORMATION
  Report Type: Spontaneous
  Country: US (occurrence: US)
  Receive Date: 20170914
  Receipt Date: 20170914
  Transmission Date: 20171128
  Serious: No
  Sender: FDA-Public Use
  Company Number: US-BAYER-2017-174285

PATIENT
  Age: 72 Year
  Sex: Female
  Weight: 118 kg

DRUGS (11)
  1. ALLEGRA [Concomitant]
     Active Substance: FEXOFENADINE HYDROCHLORIDE
  2. DULCOLAX (BISACODYL) [Suspect]
     Active Substance: BISACODYL
     Dosage: 4 DF, UNK
  3. CALCIUM [Concomitant]
     Active Substance: CALCIUM
  4. ZYRTEC [CETIRIZINE HYDROCHLORIDE] [Concomitant]
  5. D3 VIGANTOL FORTE [Concomitant]
  6. NEXIUM [Concomitant]
     Active Substance: ESOMEPRAZOLE MAGNESIUM
  7. FISH OIL [Concomitant]
     Active Substance: FISH OIL
  8. MIRALAX [Suspect]
     Active Substance: POLYETHYLENE GLYCOL 3350
     Indication: GASTROINTESTINAL DISORDER
     Route: 048
     Dates: start: 20170908, end: 20170908
  9. VITAMIN B12 [Concomitant]
     Active Substance: CYANOCOBALAMIN
  10. ONE A DAY WOMEN^S [Concomitant]
     Active Substance: MINERALS\VITAMINS
  11. POTASSIUM [Concomitant]
     Active Substance: POTASSIUM

REACTIONS (6)
  - Swollen tongue [Recovering/Resolving]
  - Product use in unapproved indication [Unknown]
  - Hypersensitivity [Recovering/Resolving]
  - Glossodynia [Recovering/Resolving]
  - Off label use [Unknown]
  - Wrong technique in product usage process [Unknown]

NARRATIVE: CASE EVENT DATE: 201708
